FAERS Safety Report 10268595 (Version 1)
Quarter: 2014Q2

REPORT INFORMATION
  Report Type: Spontaneous
  Country: GB (occurrence: GB)
  Receive Date: 20140630
  Receipt Date: 20140630
  Transmission Date: 20141212
  Serious: Yes (Other)
  Sender: FDA-Public Use
  Company Number: GB-TEVA-491005ISR

PATIENT
  Age: 21 Year
  Sex: Female
  Weight: 56 kg

DRUGS (2)
  1. TOPIRAMATE [Suspect]
     Indication: MIGRAINE PROPHYLAXIS
     Dosage: 25 MILLIGRAM DAILY; AT NIGHT
     Route: 048
     Dates: start: 20140101
  2. ZOPICLONE [Concomitant]

REACTIONS (3)
  - Atrial flutter [Not Recovered/Not Resolved]
  - Angina pectoris [Not Recovered/Not Resolved]
  - Tachycardia [Not Recovered/Not Resolved]
